FAERS Safety Report 19065827 (Version 1)
Quarter: 2021Q1

REPORT INFORMATION
  Report Type: Spontaneous
  Country: FR (occurrence: FR)
  Receive Date: 20210327
  Receipt Date: 20210327
  Transmission Date: 20210420
  Serious: Yes (Hospitalization)
  Sender: FDA-Public Use
  Company Number: FR-TEVA-2021-FR-1894019

PATIENT
  Age: 53 Year
  Sex: Male

DRUGS (3)
  1. CLORAZEPATE DIPOTASSIQUE [Suspect]
     Active Substance: CLORAZEPATE DIPOTASSIUM
     Indication: SCHIZOPHRENIA
     Dosage: 30MILLIGRAM
     Route: 048
     Dates: start: 2013
  2. TRIHEXYPHENIDYLE (CHLORHYDRATE DE) [Suspect]
     Active Substance: TRIHEXYPHENIDYL
     Indication: SCHIZOPHRENIA
     Dosage: 10MILLIGRAM
     Route: 048
     Dates: start: 2013
  3. CLOZAPINE. [Suspect]
     Active Substance: CLOZAPINE
     Indication: SCHIZOPHRENIA
     Dosage: 400MILLIGRAM
     Route: 048
     Dates: start: 2013

REACTIONS (2)
  - Lung disorder [Not Recovered/Not Resolved]
  - Large intestinal obstruction [Recovered/Resolved]

NARRATIVE: CASE EVENT DATE: 20210219
